FAERS Safety Report 15351414 (Version 1)
Quarter: 2018Q3

REPORT INFORMATION
  Report Type: Spontaneous
  Country: US (occurrence: US)
  Receive Date: 20180829
  Receipt Date: 20180829
  Transmission Date: 20181010
  Serious: Yes (Other)
  Sender: FDA-Public Use
  Company Number: None

PATIENT
  Age: 41 Year
  Sex: Female
  Weight: 123.75 kg

DRUGS (2)
  1. ALIVE VITAMINS FOR WOMEN [Concomitant]
  2. AMLODIPINE BESYLATE. [Suspect]
     Active Substance: AMLODIPINE BESYLATE
     Indication: HYPERTENSION
     Dosage: ?          QUANTITY:1 TABLET(S);?
     Route: 048
     Dates: start: 20161026, end: 20180714

REACTIONS (2)
  - Headache [None]
  - Vaginal haemorrhage [None]

NARRATIVE: CASE EVENT DATE: 20180714
